FAERS Safety Report 18963654 (Version 1)
Quarter: 2021Q1

REPORT INFORMATION
  Report Type: Spontaneous
  Country: US (occurrence: US)
  Receive Date: 20210303
  Receipt Date: 20210303
  Transmission Date: 20210420
  Serious: No
  Sender: FDA-Public Use
  Company Number: US-AMGEN-USASP2021028550

PATIENT
  Age: 45 Year
  Sex: Female

DRUGS (6)
  1. CEFEPIME [Concomitant]
     Active Substance: CEFEPIME HYDROCHLORIDE
     Indication: WOUND INFECTION
  2. LINEZOLID. [Concomitant]
     Active Substance: LINEZOLID
     Indication: WOUND INFECTION
  3. CINACALCET HCL [Suspect]
     Active Substance: CINACALCET HYDROCHLORIDE
     Indication: CALCIPHYLAXIS
     Dosage: UNK
     Route: 065
  4. VANCOMYCIN [Concomitant]
     Active Substance: VANCOMYCIN
     Indication: WOUND INFECTION
     Route: 042
  5. SODIUM THIOSULFATE [Concomitant]
     Active Substance: SODIUM THIOSULFATE
     Indication: CALCIPHYLAXIS
  6. APIXABAN [Concomitant]
     Active Substance: APIXABAN

REACTIONS (1)
  - Off label use [Unknown]
